FAERS Safety Report 15879616 (Version 2)
Quarter: 2022Q1

REPORT INFORMATION
  Report Type: Spontaneous
  Country: CH (occurrence: CH)
  Receive Date: 20190128
  Receipt Date: 20220331
  Transmission Date: 20220423
  Serious: Yes (Hospitalization, Other)
  Sender: FDA-Public Use
  Company Number: CH-SM-2019-10101

PATIENT
  Age: 54 Year
  Sex: Female

DRUGS (16)
  1. MEFENAMIC ACID [Suspect]
     Active Substance: MEFENAMIC ACID
     Dosage: AS NECESSARY
     Route: 048
     Dates: end: 20181217
  2. MIRTAZAPINE [Suspect]
     Active Substance: MIRTAZAPINE
     Dosage: AS NECESSARY
     Route: 048
  3. METAMIZOLE [Suspect]
     Active Substance: METAMIZOLE
     Indication: Analgesic therapy
     Dosage: AS NECESSARY
     Route: 065
     Dates: end: 20181217
  4. ALOPEXY [Concomitant]
     Route: 061
     Dates: end: 20181217
  5. PROLIA [Concomitant]
     Active Substance: DENOSUMAB
     Route: 058
  6. OXYCODONE HYDROCHLORIDE [Concomitant]
     Active Substance: OXYCODONE HYDROCHLORIDE
     Dosage: AS NECESSARY
     Route: 048
  7. BURGERSTEIN TOP VITAL [Concomitant]
     Route: 048
     Dates: end: 20181217
  8. PERENTEROL [Concomitant]
     Active Substance: SACCHAROMYCES CEREVISIAE
     Route: 048
     Dates: end: 20181217
  9. PANTOPRAZOLE SODIUM [Concomitant]
     Active Substance: PANTOPRAZOLE SODIUM
     Route: 048
  10. ELTROXIN LF [Concomitant]
     Route: 048
  11. CYANOCOBALAMIN [Concomitant]
     Active Substance: CYANOCOBALAMIN
     Route: 030
  12. CREON [Concomitant]
     Active Substance: PANCRELIPASE AMYLASE\PANCRELIPASE LIPASE\PANCRELIPASE PROTEASE
     Route: 048
  13. CHOLECALCIFEROL [Concomitant]
     Active Substance: CHOLECALCIFEROL
     Route: 048
  14. CALCIUM\CHOLECALCIFEROL [Concomitant]
     Active Substance: CALCIUM\CHOLECALCIFEROL
     Route: 048
  15. DYDROGESTERONE\ESTRADIOL [Concomitant]
     Active Substance: DYDROGESTERONE\ESTRADIOL
     Route: 048
  16. DEURSIL [Concomitant]
     Active Substance: URSODIOL
     Route: 048

REACTIONS (4)
  - Agranulocytosis [Recovered/Resolved]
  - Pancytopenia [Recovered/Resolved]
  - Neutropenic colitis [Recovered/Resolved]
  - Febrile neutropenia [Recovered/Resolved]

NARRATIVE: CASE EVENT DATE: 20181217
